FAERS Safety Report 18844626 (Version 1)
Quarter: 2021Q1

REPORT INFORMATION
  Report Type: Report from Study
  Country: US (occurrence: US)
  Receive Date: 20210203
  Receipt Date: 20210203
  Transmission Date: 20210419
  Serious: No
  Sender: FDA-Public Use
  Company Number: US-EXELIXIS-CABO-20032595

PATIENT
  Age: 61 Year
  Sex: Female

DRUGS (4)
  1. CABOMETYX [Suspect]
     Active Substance: CABOZANTINIB S-MALATE
     Indication: RENAL CANCER
     Dosage: 60 MG, QD
     Route: 048
     Dates: start: 20200815
  2. CABOMETYX [Suspect]
     Active Substance: CABOZANTINIB S-MALATE
     Dosage: 40 MG, QD
     Route: 048
     Dates: start: 202008
  3. CLOBETASOL [Concomitant]
     Active Substance: CLOBETASOL
  4. UREA. [Concomitant]
     Active Substance: UREA

REACTIONS (11)
  - Diarrhoea [Unknown]
  - Limb discomfort [Unknown]
  - Gingival recession [Unknown]
  - Dry throat [Unknown]
  - Skin papilloma [Unknown]
  - Stomatitis [Not Recovered/Not Resolved]
  - Fatigue [Unknown]
  - Dysphonia [Unknown]
  - Oesophageal candidiasis [Unknown]
  - Odynophagia [Unknown]
  - Palmar-plantar erythrodysaesthesia syndrome [Unknown]

NARRATIVE: CASE EVENT DATE: 20200828
